FAERS Safety Report 14538735 (Version 1)
Quarter: 2018Q1

REPORT INFORMATION
  Report Type: Spontaneous
  Country: US (occurrence: US)
  Receive Date: 20180216
  Receipt Date: 20180216
  Transmission Date: 20180509
  Serious: No
  Sender: FDA-Public Use
  Company Number: US-ENDO PHARMACEUTICALS INC-2017-011889

PATIENT
  Sex: Male

DRUGS (1)
  1. VIGABATRIN. [Suspect]
     Active Substance: VIGABATRIN
     Indication: INFANTILE SPASMS
     Dosage: BID, 500 MG IN A.M, 600 MG IN P.M
     Route: 065

REACTIONS (3)
  - Drug ineffective [Unknown]
  - Product substitution issue [Unknown]
  - Malaise [Unknown]
